FAERS Safety Report 16140531 (Version 1)
Quarter: 2019Q1

REPORT INFORMATION
  Report Type: Spontaneous
  Country: US (occurrence: US)
  Receive Date: 20190226
  Receipt Date: 20190226
  Transmission Date: 20190418
  Serious: No
  Sender: FDA-Public Use
  Company Number: None

PATIENT
  Age: 21 Year
  Sex: Female

DRUGS (2)
  1. ZYKADIA [Suspect]
     Active Substance: CERITINIB
     Indication: ADRENAL GLAND CANCER
     Dates: start: 20180814
  2. KISQALI [Suspect]
     Active Substance: RIBOCICLIB
     Indication: ADRENAL GLAND CANCER
     Route: 048
     Dates: start: 20180814

REACTIONS (3)
  - Therapy cessation [None]
  - Sinusitis [None]
  - Respiratory syncytial virus infection [None]

NARRATIVE: CASE EVENT DATE: 201902
